FAERS Safety Report 4849885-5 (Version None)
Quarter: 2005Q4

REPORT INFORMATION
  Report Type: 
  Country: None (occurrence: None)
  Receive Date: 20051209
  Receipt Date: 20051005
  Transmission Date: 20060501
  Serious: Yes (Death, Hospitalization, Other)
  Sender: FDA-Public Use
  Company Number: US-MERCK-0510USA04337

PATIENT
  Age: 60 Year
  Sex: Male
  Weight: 95 kg

DRUGS (23)
  1. MOBIC [Concomitant]
     Route: 065
  2. HYDROCODONE HYDROCHLORIDE [Concomitant]
     Route: 065
  3. OXYCONTIN [Concomitant]
     Route: 065
  4. DIAZEPAM [Concomitant]
     Route: 065
  5. LIPITOR [Concomitant]
     Route: 065
  6. AVAPRO [Concomitant]
     Route: 065
  7. KRISTALOSE [Concomitant]
     Route: 065
  8. ZOLOFT [Concomitant]
     Indication: DEPRESSION
     Route: 065
  9. NORVASC [Concomitant]
     Route: 065
  10. AMBIEN [Concomitant]
     Route: 065
  11. TOPROL-XL [Concomitant]
     Route: 065
  12. TRIAMTERENE [Concomitant]
     Route: 065
  13. PRILOSEC [Concomitant]
     Route: 065
  14. LIDOCAINE [Concomitant]
     Route: 065
  15. COMBIVENT [Concomitant]
     Route: 065
  16. SEREVENT [Concomitant]
     Route: 065
  17. FLOVENT [Concomitant]
     Route: 065
  18. [THERAPY UNSPECIFIED] [Concomitant]
     Route: 065
  19. EFFEXOR [Concomitant]
     Route: 065
  20. NEURONTIN [Concomitant]
     Route: 065
  21. DURAGESIC-100 [Concomitant]
     Route: 065
  22. VIOXX [Suspect]
     Indication: BACK PAIN
     Route: 048
     Dates: start: 19990101, end: 20020501
  23. PAXIL [Concomitant]
     Route: 065

REACTIONS (17)
  - AGGRESSION [None]
  - ANXIETY [None]
  - CARDIOVASCULAR DISORDER [None]
  - CONSTIPATION [None]
  - DEATH [None]
  - GASTRIC ULCER [None]
  - GASTROINTESTINAL DISORDER [None]
  - GENERAL PHYSICAL HEALTH DETERIORATION [None]
  - HOSTILITY [None]
  - HYPERCHOLESTEROLAEMIA [None]
  - HYPERTENSION [None]
  - LOBAR PNEUMONIA [None]
  - MYOCARDIAL INFARCTION [None]
  - PULMONARY EMBOLISM [None]
  - RASH [None]
  - SKIN REACTION [None]
  - SPINAL DISORDER [None]
